FAERS Safety Report 4475452-1 (Version None)
Quarter: 2004Q4

REPORT INFORMATION
  Report Type: 
  Country: None (occurrence: None)
  Receive Date: 20041014
  Receipt Date: 20041014
  Transmission Date: 20050328
  Serious: Yes (Hospitalization, Other)
  Sender: FDA-Public Use
  Company Number: None

PATIENT
  Age: 82 Year
  Sex: Female
  Weight: 63.5036 kg

DRUGS (1)
  1. XANAX [Suspect]
     Indication: RESTLESSNESS
     Dosage: ONE .05 ONE INJECTION
     Dates: start: 20030801

REACTIONS (6)
  - ABASIA [None]
  - APHASIA [None]
  - CRYING [None]
  - EATING DISORDER [None]
  - HALLUCINATION [None]
  - LOSS OF CONSCIOUSNESS [None]
